FAERS Safety Report 22093787 (Version 1)
Quarter: 2023Q1

REPORT INFORMATION
  Report Type: Spontaneous
  Country: US (occurrence: None)
  Receive Date: 20230314
  Receipt Date: 20230314
  Transmission Date: 20230417
  Serious: No
  Sender: FDA-Public Use
  Company Number: None

PATIENT
  Sex: Male
  Weight: 101.15 kg

DRUGS (9)
  1. CAPECITABINE [Suspect]
     Active Substance: CAPECITABINE
     Indication: Appendix cancer
     Dosage: FREQUENCY : TWICE A DAY; 14 DAYS ON   7 DAYS OFF?
     Route: 048
  2. CAPECITABINE [Suspect]
     Active Substance: CAPECITABINE
     Indication: Appendix cancer
     Dosage: FREQUENCY : TWICE A DAY; 14 DAYS ON 7 DAYS OFF?
     Route: 048
  3. ASCORBIC ACID [Concomitant]
  4. ASPIRIN [Concomitant]
  5. COLCHICINE [Concomitant]
  6. FAMOTIDINE [Concomitant]
  7. GABAPENTIN [Concomitant]
  8. LYRICA [Concomitant]
  9. MAGNESIUM OXIDE [Concomitant]

REACTIONS (3)
  - Therapy change [None]
  - Palmar-plantar erythrodysaesthesia syndrome [None]
  - Mouth ulceration [None]
